FAERS Safety Report 13949332 (Version 1)
Quarter: 2017Q3

REPORT INFORMATION
  Report Type: Spontaneous
  Country: US (occurrence: US)
  Receive Date: 20170908
  Receipt Date: 20170908
  Transmission Date: 20171128
  Serious: No
  Sender: FDA-Public Use
  Company Number: US-JAZZ-2017-US-009314

PATIENT
  Age: 31 Year
  Sex: Female

DRUGS (4)
  1. ZOLOFT [Concomitant]
     Active Substance: SERTRALINE HYDROCHLORIDE
  2. XYREM [Suspect]
     Active Substance: SODIUM OXYBATE
     Indication: NARCOLEPSY
     Dosage: 2.25G, BID
     Route: 048
     Dates: start: 20170712, end: 20170714
  3. TOPAMAX [Concomitant]
     Active Substance: TOPIRAMATE
  4. NAPROXEN. [Concomitant]
     Active Substance: NAPROXEN

REACTIONS (4)
  - Frustration tolerance decreased [Unknown]
  - Malaise [Unknown]
  - Nausea [Unknown]
  - Irritability [Unknown]

NARRATIVE: CASE EVENT DATE: 20170712
